FAERS Safety Report 6585028-8 (Version None)
Quarter: 2010Q1

REPORT INFORMATION
  Report Type: 
  Country: None (occurrence: None)
  Receive Date: 20100217
  Receipt Date: 20100209
  Transmission Date: 20100710
  Serious: Yes (Hospitalization)
  Sender: FDA-Public Use
  Company Number: FR-AMGEN-QUU391581

PATIENT
  Age: 76 Year
  Sex: Male

DRUGS (4)
  1. NEULASTA [Suspect]
     Indication: CHEMOTHERAPY
     Route: 058
     Dates: start: 20090512, end: 20090914
  2. ZOMETA [Suspect]
     Route: 042
     Dates: start: 20090512, end: 20090914
  3. EPREX [Suspect]
     Dates: start: 20090303, end: 20090824
  4. TAXOTERE [Concomitant]
     Dates: end: 20090914

REACTIONS (1)
  - INTERSTITIAL LUNG DISEASE [None]
